FAERS Safety Report 8031146-7 (Version None)
Quarter: 2012Q1

REPORT INFORMATION
  Report Type: 
  Country: None (occurrence: None)
  Receive Date: 20120109
  Receipt Date: 20111230
  Transmission Date: 20120608
  Serious: Yes (Hospitalization)
  Sender: FDA-Public Use
  Company Number: US-ACTELION-A-US2011-50816

PATIENT

DRUGS (16)
  1. DIGOXIN [Concomitant]
  2. ACETAMINOPHEN [Concomitant]
  3. BUMEX [Concomitant]
  4. ZOFRAN [Concomitant]
  5. LOPERAMIDE [Concomitant]
  6. OXYGEN [Concomitant]
  7. VITAMIN B 12 LICHTENSTEIN [Concomitant]
  8. FOLIC ACID [Concomitant]
  9. MONTELUKAST [Concomitant]
  10. POTASSIUM CHLORIDE [Concomitant]
  11. PRILOSEC [Concomitant]
  12. SPIRONOLACTONE [Concomitant]
  13. CALCIUM CARBONATE [Concomitant]
  14. EPOPROSTENOL SODIUM [Suspect]
     Indication: PULMONARY ARTERIAL HYPERTENSION
     Dosage: 4 NG/KG, PER MIN
     Route: 042
     Dates: start: 20010602
  15. TRACLEER [Suspect]
     Indication: PULMONARY ARTERIAL HYPERTENSION
     Dosage: 125 MG, BID
     Route: 048
     Dates: start: 20100309
  16. SILDENAFIL [Concomitant]

REACTIONS (7)
  - URINE LEUKOCYTE ESTERASE POSITIVE [None]
  - ANAEMIA [None]
  - DIARRHOEA [None]
  - GASTROINTESTINAL HAEMORRHAGE [None]
  - OCCULT BLOOD POSITIVE [None]
  - HAEMATOCHEZIA [None]
  - TRANSFUSION [None]
